FAERS Safety Report 7629965-1 (Version None)
Quarter: 2011Q3

REPORT INFORMATION
  Report Type: 
  Country: None (occurrence: None)
  Receive Date: 20110722
  Receipt Date: 20110719
  Transmission Date: 20111222
  Serious: Yes (Disabling)
  Sender: FDA-Public Use
  Company Number: IT-MERCK-1107ITA00030

PATIENT
  Age: 86 Year
  Sex: Female

DRUGS (5)
  1. LANSOPRAZOLE [Concomitant]
     Route: 065
  2. FOSAMAX [Suspect]
     Indication: OSTEOPOROSIS
     Route: 048
     Dates: start: 20000101, end: 20100101
  3. TICLOPIDINE HYDROCHLORIDE [Concomitant]
     Route: 065
  4. CLODRONIC ACID [Suspect]
     Indication: OSTEOPOROSIS
     Route: 065
     Dates: start: 20100101, end: 20110701
  5. FUROSEMIDE [Concomitant]
     Route: 065

REACTIONS (1)
  - OSTEONECROSIS [None]
